FAERS Safety Report 17354572 (Version 1)
Quarter: 2020Q1

REPORT INFORMATION
  Report Type: Spontaneous
  Country: US (occurrence: US)
  Receive Date: 20190531
  Receipt Date: 20190531
  Transmission Date: 20200409
  Serious: No
  Sender: FDA-Public Use
  Company Number: None

PATIENT
  Age: 24 Year
  Sex: Male

DRUGS (3)
  1. MARIJUANA [Suspect]
     Active Substance: CANNABIS SATIVA SUBSP. INDICA TOP
  2. JUUL [DEVICE\NICOTINE] [Suspect]
     Active Substance: DEVICE\NICOTINE
  3. VYVANSE [Suspect]
     Active Substance: LISDEXAMFETAMINE DIMESYLATE
     Dosage: TAKEN 12 HRS BEFORE SEIZURE

REACTIONS (4)
  - Fall [None]
  - Seizure [None]
  - Palpitations [None]
  - Photophobia [None]
